FAERS Safety Report 18202882 (Version 1)
Quarter: 2020Q3

REPORT INFORMATION
  Report Type: Report from Study
  Country: DE (occurrence: AR)
  Receive Date: 20200827
  Receipt Date: 20200827
  Transmission Date: 20201103
  Serious: Yes (Other)
  Sender: FDA-Public Use
  Company Number: AR-ELI_LILLY_AND_COMPANY-AR202008010419

PATIENT
  Age: 64 Year
  Sex: Male

DRUGS (3)
  1. CAPECITABINE. [Suspect]
     Active Substance: CAPECITABINE
     Indication: COLORECTAL CANCER
     Dosage: 8 DOSAGE FORM, DAILY
     Route: 065
     Dates: start: 202004
  2. MERIDIAN [THEOPHYLLINE] [Concomitant]
     Indication: MEMORY IMPAIRMENT
     Dosage: FROM 10 YEARS
     Dates: start: 2010
  3. CETUXIMAB. [Suspect]
     Active Substance: CETUXIMAB
     Indication: COLORECTAL CANCER
     Dosage: 438 MG, WEEKLY (1/W)
     Route: 065
     Dates: start: 20200402

REACTIONS (5)
  - Off label use [Unknown]
  - Vomiting [Recovered/Resolved]
  - Diarrhoea [Recovered/Resolved]
  - Renal failure [Recovered/Resolved]
  - Weight decreased [Recovered/Resolved]

NARRATIVE: CASE EVENT DATE: 2020
